FAERS Safety Report 15753344 (Version 2)
Quarter: 2019Q1

REPORT INFORMATION
  Report Type: Report from Study
  Country: US (occurrence: US)
  Receive Date: 20181222
  Receipt Date: 20190103
  Transmission Date: 20190417
  Serious: Yes (Death)
  Sender: FDA-Public Use
  Company Number: US-ASTELLAS-2018US031522

PATIENT
  Age: 92 Year
  Sex: Male

DRUGS (1)
  1. ENZALUTAMIDE [Suspect]
     Active Substance: ENZALUTAMIDE
     Indication: PROSTATE CANCER METASTATIC
     Route: 048
     Dates: end: 20180710

REACTIONS (2)
  - Treatment noncompliance [Unknown]
  - Death [Fatal]

NARRATIVE: CASE EVENT DATE: 20180711
